FAERS Safety Report 7197685-6 (Version None)
Quarter: 2010Q4

REPORT INFORMATION
  Report Type: 
  Country: None (occurrence: None)
  Receive Date: 20101227
  Receipt Date: 20101214
  Transmission Date: 20110411
  Serious: Yes (Hospitalization, Other)
  Sender: FDA-Public Use
  Company Number: US-ELI_LILLY_AND_COMPANY-US201010007083

PATIENT
  Sex: Female

DRUGS (17)
  1. FORTEO [Suspect]
     Indication: OSTEOPOROSIS
     Dosage: 20 UG, DAILY (1/D)
     Dates: end: 20101008
  2. FORTEO [Suspect]
     Dosage: 20 UG, DAILY (1/D)
     Dates: start: 20101201
  3. ASPIRIN [Concomitant]
     Dosage: 325 MG, DAILY (1/D)
  4. COREG [Concomitant]
     Dosage: 625 MG, 2/D
  5. NORVASC [Concomitant]
     Dosage: 5 MG, DAILY (1/D)
  6. COLACE [Concomitant]
     Dosage: 200 MG, DAILY (1/D)
  7. LASIX [Concomitant]
     Dosage: 40 MG, 2/D
  8. LEXAPRO [Concomitant]
     Dosage: 1 TABLET, UNKNOWN
  9. NITROGLYCERIN [Concomitant]
     Dosage: 0.4 D/F, DAILY (1/D)
  10. PLAVIX [Concomitant]
     Dosage: 75 MG, DAILY (1/D)
  11. SPIRONOLACTONE [Concomitant]
     Dosage: 25 MG HALF A TABLET, DAILY (1/D)
  12. CALCIUM WITH VITAMIN D [Concomitant]
     Dosage: 600 MG, 2/D
  13. CLONIDINE [Concomitant]
     Dosage: 0.1 MG, EACH EVENING
  14. ZOCOR [Concomitant]
     Dosage: 20 MG, UNKNOWN
  15. TYLENOL (CAPLET) [Concomitant]
     Indication: PAIN
     Dosage: 650 MG, AS NEEDED
  16. GAVISCON CHEWABLE [Concomitant]
  17. XANAX [Concomitant]
     Indication: ANXIETY
     Dosage: UNK, UNKNOWN

REACTIONS (10)
  - ARTHRALGIA [None]
  - ARTHRITIS [None]
  - BACK PAIN [None]
  - BREAST PAIN [None]
  - CHEST PAIN [None]
  - DRUG DOSE OMISSION [None]
  - FALL [None]
  - HIP FRACTURE [None]
  - MEDICATION ERROR [None]
  - WEIGHT BEARING DIFFICULTY [None]
